FAERS Safety Report 8947382 (Version 4)
Quarter: 2013Q1

REPORT INFORMATION
  Report Type: Spontaneous
  Country: GB (occurrence: GB)
  Receive Date: 20121205
  Receipt Date: 20130325
  Transmission Date: 20140127
  Serious: Yes (Other)
  Sender: FDA-Public Use
  Company Number: GB-PFIZER INC-2012299967

PATIENT
  Age: 46 Year
  Sex: Female

DRUGS (3)
  1. METRONIDAZOLE [Suspect]
     Indication: TOOTH INFECTION
     Dosage: 3 DF, UNK
     Route: 048
     Dates: start: 20121031, end: 20121101
  2. NUROFEN [Concomitant]
     Indication: ANALGESIC THERAPY
     Dosage: 200 MG, 4X/DAY
  3. PARACETAMOL [Concomitant]
     Indication: ANALGESIC THERAPY
     Dosage: 500 MG, 2X/DAY

REACTIONS (17)
  - Neuropathy peripheral [Recovered/Resolved]
  - Hypoaesthesia [Recovered/Resolved]
  - Paraesthesia [Recovering/Resolving]
  - Asthenia [Recovered/Resolved]
  - Muscular weakness [Recovered/Resolved]
  - Gastrointestinal disorder [Recovered/Resolved]
  - Headache [Recovered/Resolved]
  - Dizziness [Recovered/Resolved]
  - Fatigue [Recovered/Resolved]
  - Hyperacusis [Recovered/Resolved]
  - Neck pain [Recovered/Resolved]
  - Decreased appetite [Recovered/Resolved]
  - Weight decreased [Recovered/Resolved]
  - Abnormal behaviour [Not Recovered/Not Resolved]
  - Diarrhoea [Unknown]
  - Paraesthesia [Unknown]
  - Hypoaesthesia [Unknown]
